FAERS Safety Report 7917147-5 (Version None)
Quarter: 2011Q4

REPORT INFORMATION
  Report Type: 
  Country: None (occurrence: None)
  Receive Date: 20111102
  Receipt Date: 20110728
  Transmission Date: 20120403
  Serious: Yes (Hospitalization)
  Sender: FDA-Public Use
  Company Number: 2011029357

PATIENT
  Age: 54 Year
  Sex: Female

DRUGS (2)
  1. PRIVIGEN [Suspect]
  2. PRIVIGEN [Suspect]
     Dosage: 30 G QD INTRAVENOUS, 100 MG/ML(NOT OTHERWISE SPECIFIED
     Route: 042
     Dates: start: 20110720, end: 20110723

REACTIONS (7)
  - PYREXIA [None]
  - HEADACHE [None]
  - NAUSEA [None]
  - VOMITING [None]
  - WHITE BLOOD CELL COUNT DECREASED [None]
  - GRAM STAIN POSITIVE [None]
  - NEUTROPENIA [None]
